FAERS Safety Report 5642501-4 (Version None)
Quarter: 2008Q1

REPORT INFORMATION
  Report Type: 
  Country: None (occurrence: None)
  Receive Date: 20080227
  Receipt Date: 20080227
  Transmission Date: 20080703
  Serious: Yes (Other)
  Sender: FDA-Public Use
  Company Number: None

PATIENT
  Age: 66 Year
  Sex: Female

DRUGS (3)
  1. FOSAMAX [Suspect]
     Indication: MULTIPLE MYELOMA
     Dosage: 70MG WEEKLY
     Dates: start: 20031001, end: 20061101
  2. AREDIA [Suspect]
     Dosage: 90MG IV MONTHLY
     Route: 042
     Dates: start: 20000301, end: 20031001
  3. CELEBREX [Concomitant]

REACTIONS (2)
  - BONE DISORDER [None]
  - DRUG TOXICITY [None]
